FAERS Safety Report 17879863 (Version 1)
Quarter: 2020Q2

REPORT INFORMATION
  Report Type: Spontaneous
  Country: US (occurrence: US)
  Receive Date: 20200610
  Receipt Date: 20200610
  Transmission Date: 20200714
  Serious: No
  Sender: FDA-Public Use
  Company Number: US-PFIZER INC-2020224582

PATIENT
  Sex: Female

DRUGS (2)
  1. GABAPENTIN. [Suspect]
     Active Substance: GABAPENTIN
     Indication: POST HERPETIC NEURALGIA
     Dosage: UNK, 3X/DAY
     Dates: start: 20200605, end: 202006
  2. ACYCLOVIR. [Interacting]
     Active Substance: ACYCLOVIR
     Indication: POST HERPETIC NEURALGIA
     Dosage: UNK, 3X/DAY
     Dates: start: 20200605

REACTIONS (4)
  - Nausea [Unknown]
  - Drug interaction [Unknown]
  - Vomiting [Unknown]
  - Headache [Recovered/Resolved]

NARRATIVE: CASE EVENT DATE: 202006
